FAERS Safety Report 5450631-5 (Version None)
Quarter: 2007Q3

REPORT INFORMATION
  Report Type: 
  Country: None (occurrence: None)
  Receive Date: 20070910
  Receipt Date: 20070904
  Transmission Date: 20080115
  Serious: Yes (Death)
  Sender: FDA-Public Use
  Company Number: 2007SP017712

PATIENT
  Age: 64 Year
  Sex: Female

DRUGS (1)
  1. CLARINEX [Suspect]
     Indication: DRUG USE FOR UNKNOWN INDICATION
     Dosage: 5.0 MG; PO
     Route: 048

REACTIONS (1)
  - DEATH [None]
